FAERS Safety Report 4917039-X (Version None)
Quarter: 2006Q1

REPORT INFORMATION
  Report Type: 
  Country: None (occurrence: None)
  Receive Date: 20060214
  Receipt Date: 20060203
  Transmission Date: 20060701
  Serious: Yes (Hospitalization, Other)
  Sender: FDA-Public Use
  Company Number: HQWYE689806FEB06

PATIENT
  Age: 86 Year
  Sex: Male

DRUGS (6)
  1. CORDARONE [Suspect]
     Dosage: 200 MG 1X PER 1 DAY ORAL
     Route: 048
  2. PREVISCAN (FLUINDIONE,) [Suspect]
     Dosage: 15 MG 1X PER 1 DAY ORAL
     Route: 048
     Dates: start: 20051015, end: 20051206
  3. SPECIAFOLDINE (FOLIC ACID) [Concomitant]
  4. FUROSEMIDE [Concomitant]
  5. KENZEN (CANDESARTAN CILEXETIL) [Concomitant]
  6. CYPROTERONE (CYPROTERONE) [Concomitant]

REACTIONS (4)
  - ANAEMIA [None]
  - DRUG INTERACTION [None]
  - INTERNATIONAL NORMALISED RATIO INCREASED [None]
  - RECTAL HAEMORRHAGE [None]
